FAERS Safety Report 11731224 (Version 1)
Quarter: 2015Q4

REPORT INFORMATION
  Report Type: Spontaneous
  Country: US (occurrence: US)
  Receive Date: 20151110
  Receipt Date: 20151110
  Transmission Date: 20160304
  Serious: No
  Sender: FDA-Public Use
  Company Number: US-ELI_LILLY_AND_COMPANY-US201201007524

PATIENT
  Age: 61 Year
  Sex: Female

DRUGS (2)
  1. FORTEO [Suspect]
     Active Substance: TERIPARATIDE
     Indication: OSTEOPOROSIS
     Dosage: 20 UG, QD
     Dates: start: 201112
  2. FORTEO [Suspect]
     Active Substance: TERIPARATIDE
     Dosage: 20 UG, QD

REACTIONS (12)
  - Cough [Unknown]
  - Depression [Unknown]
  - Lymphadenopathy [Not Recovered/Not Resolved]
  - Post-traumatic stress disorder [Unknown]
  - Rhinorrhoea [Unknown]
  - Pain [Unknown]
  - Sneezing [Unknown]
  - Fall [Unknown]
  - Crying [Unknown]
  - Productive cough [Unknown]
  - Anxiety [Unknown]
  - Bone pain [Unknown]

NARRATIVE: CASE EVENT DATE: 201201
